FAERS Safety Report 12326869 (Version 1)
Quarter: 2016Q2

REPORT INFORMATION
  Report Type: Spontaneous
  Country: US (occurrence: US)
  Receive Date: 20160503
  Receipt Date: 20160503
  Transmission Date: 20160815
  Serious: No
  Sender: FDA-Public Use
  Company Number: US-BRACCO-011978

PATIENT

DRUGS (1)
  1. VOLUMEN [Suspect]
     Active Substance: BARIUM SULFATE
     Indication: DIAGNOSTIC PROCEDURE

REACTIONS (2)
  - Drug ineffective [Unknown]
  - No adverse event [Unknown]
